FAERS Safety Report 22952579 (Version 3)
Quarter: 2023Q4

REPORT INFORMATION
  Report Type: Spontaneous
  Country: US (occurrence: US)
  Receive Date: 20230918
  Receipt Date: 20231130
  Transmission Date: 20240110
  Serious: No
  Sender: FDA-Public Use
  Company Number: US-ALNYLAM PHARMACEUTICALS, INC.-ALN-2023-004578

PATIENT

DRUGS (7)
  1. ONPATTRO [Suspect]
     Active Substance: PATISIRAN SODIUM
     Indication: Polyneuropathy
     Dosage: UNK UNK, Q3W, INFUSION
     Route: 042
     Dates: start: 20230117
  2. ONPATTRO [Suspect]
     Active Substance: PATISIRAN SODIUM
     Indication: Hereditary neuropathic amyloidosis
     Dosage: UNK
     Route: 065
     Dates: start: 20231108
  3. VITAMIN A [Concomitant]
     Active Substance: VITAMIN A
     Indication: Vitamin supplementation
     Dosage: 20000 UNITS, WEEKLY
     Route: 065
  4. GABAPENTIN [Concomitant]
     Active Substance: GABAPENTIN
     Indication: Product used for unknown indication
     Dosage: 100 MILLIGRAM, QD (AT NIGHT)
     Route: 065
  5. VITAMIN D [Concomitant]
     Active Substance: VITAMIN D NOS
     Indication: Product used for unknown indication
     Dosage: UNK
     Route: 065
  6. VITAMIN B12 [Concomitant]
     Active Substance: CYANOCOBALAMIN
     Indication: Product used for unknown indication
     Dosage: UNK
     Route: 065
  7. VITAMIN C [Concomitant]
     Active Substance: ASCORBIC ACID
     Indication: Product used for unknown indication
     Route: 065

REACTIONS (8)
  - Vitamin A decreased [Unknown]
  - Nervousness [Unknown]
  - Feeling jittery [Unknown]
  - Flushing [Recovering/Resolving]
  - Acoustic neuroma [Recovered/Resolved]
  - Balance disorder [Recovering/Resolving]
  - Hair texture abnormal [Unknown]
  - Nail disorder [Unknown]
